FAERS Safety Report 8187915 (Version 2)
Quarter: 2015Q2

REPORT INFORMATION
  Report Type: Spontaneous
  Country: US (occurrence: US)
  Receive Date: 20111018
  Receipt Date: 20150427
  Transmission Date: 20150821
  Serious: Yes (Other)
  Sender: FDA-Public Use
  Company Number: US-ROCHE-782077

PATIENT
  Sex: Female
  Weight: 83.99 kg

DRUGS (1)
  1. ACCUTANE [Suspect]
     Active Substance: ISOTRETINOIN
     Indication: ACNE
     Route: 065
     Dates: start: 200201, end: 200812

REACTIONS (6)
  - Irritable bowel syndrome [Unknown]
  - Depression [Unknown]
  - Colitis ulcerative [Unknown]
  - Abdominal pain [Unknown]
  - Vitamin B12 deficiency [Unknown]
  - Rectal haemorrhage [Unknown]

NARRATIVE: CASE EVENT DATE: 2007
